FAERS Safety Report 12295212 (Version 1)
Quarter: 2016Q2

REPORT INFORMATION
  Report Type: Spontaneous
  Country: US (occurrence: US)
  Receive Date: 20160422
  Receipt Date: 20160422
  Transmission Date: 20160815
  Serious: No
  Sender: FDA-Public Use
  Company Number: US-GLAXOSMITHKLINE-US2016055772

PATIENT
  Age: 35 Year
  Sex: Female

DRUGS (1)
  1. ABREVA [Suspect]
     Active Substance: DOCOSANOL
     Indication: ORAL HERPES
     Dosage: UNK
     Dates: start: 20160409, end: 20160412

REACTIONS (7)
  - Sunburn [Unknown]
  - Oral herpes [Recovered/Resolved]
  - Condition aggravated [Recovered/Resolved]
  - Oral discomfort [Recovered/Resolved]
  - Pallor [Recovered/Resolved]
  - Scab [Not Recovered/Not Resolved]
  - Product quality issue [Unknown]

NARRATIVE: CASE EVENT DATE: 20160409
